FAERS Safety Report 9520160 (Version 2)
Quarter: 2013Q3

REPORT INFORMATION
  Report Type: Spontaneous
  Country: IT (occurrence: IT)
  Receive Date: 20130912
  Receipt Date: 20130912
  Transmission Date: 20140515
  Serious: Yes (Hospitalization)
  Sender: FDA-Public Use
  Company Number: IT-ELI_LILLY_AND_COMPANY-IT201307010373

PATIENT
  Age: 72 Year
  Sex: Male
  Weight: 60 kg

DRUGS (14)
  1. ALIMTA [Suspect]
     Indication: LUNG ADENOCARCINOMA METASTATIC
     Dosage: 500 MG/M2, CYCLICAL (EVERY 21 DAYS)
     Route: 042
     Dates: start: 20130405, end: 20130429
  2. ALIMTA [Suspect]
     Dosage: 375 MG/M2, CYCLICAL (75% OF INITIAL DOSE)
     Route: 042
  3. CARBOPLATINO [Suspect]
     Indication: LUNG ADENOCARCINOMA METASTATIC
     Dosage: 377 MG, UNK
     Route: 042
     Dates: start: 20130405, end: 20130429
  4. CARBOPLATINO [Suspect]
     Dosage: 498 MG, UNK
     Dates: start: 20130429
  5. CARBOPLATINO [Suspect]
     Dosage: 75 % OF INITIAL DOSE
     Route: 042
  6. ZOFRAN [Concomitant]
     Dosage: 8 MG, UNK
     Route: 042
     Dates: start: 20130405, end: 20130429
  7. ZOFRAN [Concomitant]
     Dosage: 8 MG, UNK
     Route: 060
  8. ZOFRAN [Concomitant]
     Dosage: 2 DF, FOR 3 DAYS AFTER CHEMO
  9. DOBETIN [Concomitant]
     Indication: PREMEDICATION
  10. FOLIC ACID [Concomitant]
     Indication: PREMEDICATION
  11. NEBIVOLOL [Concomitant]
     Dosage: 2.5 MG, UNK
  12. COVERSYL [Concomitant]
     Dosage: 5 MG, UNK
     Route: 048
  13. CRESTOR [Concomitant]
  14. DELTACORTENE [Concomitant]

REACTIONS (12)
  - Intestinal obstruction [Recovered/Resolved]
  - Leukopenia [Recovered/Resolved]
  - Thrombocytopenia [Recovered/Resolved]
  - Ileus paralytic [Unknown]
  - Ileus spastic [Unknown]
  - Off label use [Unknown]
  - Alanine aminotransferase increased [Unknown]
  - Aspartate aminotransferase increased [Unknown]
  - Haemoglobin decreased [Unknown]
  - Haematocrit decreased [Unknown]
  - C-reactive protein increased [Unknown]
  - Off label use [Unknown]
